FAERS Safety Report 11051560 (Version 1)
Quarter: 2015Q2

REPORT INFORMATION
  Report Type: Spontaneous
  Country: US (occurrence: None)
  Receive Date: 20150420
  Receipt Date: 20150420
  Transmission Date: 20150821
  Serious: Yes (Hospitalization)
  Sender: FDA-Public Use
  Company Number: None

PATIENT
  Age: 65 Year
  Sex: Male
  Weight: 95.9 kg

DRUGS (1)
  1. HEPARIN [Suspect]
     Active Substance: HEPARIN SODIUM
     Indication: DIALYSIS
     Route: 042
     Dates: start: 20150117, end: 20150224

REACTIONS (2)
  - Anaemia [None]
  - Gastric haemorrhage [None]

NARRATIVE: CASE EVENT DATE: 20150224
